FAERS Safety Report 9521555 (Version 1)
Quarter: 2013Q3

REPORT INFORMATION
  Report Type: Spontaneous
  Country: US (occurrence: None)
  Receive Date: 20130911
  Receipt Date: 20130911
  Transmission Date: 20140515
  Serious: No
  Sender: FDA-Public Use
  Company Number: AEUSA201300142

PATIENT
  Sex: Female

DRUGS (25)
  1. GAMUNEX-C (10 PCT) [Suspect]
     Indication: CHRONIC INFLAMMATORY DEMYELINATING POLYRADICULONEUROPATHY
     Dosage: 15 QW; QOW; IV
     Route: 042
     Dates: start: 2011
  2. BENADRYL [Concomitant]
  3. ACETAMINOPHEN [Concomitant]
  4. PREDNISONE [Concomitant]
  5. ESTRADIOL [Concomitant]
  6. ZYRTEC [Concomitant]
  7. XANAX [Concomitant]
  8. MESTINON [Concomitant]
  9. TRAMADOL [Concomitant]
  10. NEURONTIN [Concomitant]
  11. NORTRIPTYLINE [Concomitant]
  12. ADVAIR [Concomitant]
  13. FLUTICASONE [Concomitant]
  14. ONDANSETRON [Concomitant]
  15. PRODRIN [Concomitant]
  16. VICODIN [Concomitant]
  17. FIORINAL /00090401/ [Concomitant]
  18. MULTIVITAMIN /00097801/ [Concomitant]
  19. ASA [Concomitant]
  20. EPI-PEN [Concomitant]
  21. NASAL SPRAY [Concomitant]
  22. PRILOSEC /00661201/ [Concomitant]
  23. CARIMUNE [Concomitant]
  24. PRIVIGEN [Concomitant]
  25. GAMUNEX [Concomitant]

REACTIONS (4)
  - Pruritus [None]
  - Urticaria [None]
  - Erythema [None]
  - Feeling hot [None]
